FAERS Safety Report 6288159-5 (Version None)
Quarter: 2009Q3

REPORT INFORMATION
  Report Type: 
  Country: None (occurrence: None)
  Receive Date: 20090729
  Receipt Date: 20090728
  Transmission Date: 20100115
  Serious: Yes (Life-Threatening)
  Sender: FDA-Public Use
  Company Number: IT-WYE-G03956809

PATIENT
  Sex: Female

DRUGS (19)
  1. TYGACIL [Suspect]
     Indication: ENDOCARDITIS
     Route: 042
     Dates: start: 20090613, end: 20090622
  2. EUTIROX [Concomitant]
     Dosage: 100 MCG TABLETS
     Route: 048
  3. ANTRA [Concomitant]
     Dosage: 40MG CAPSULES
     Route: 048
  4. KEPPRA [Concomitant]
     Dosage: 1000 MG TABLETS
     Route: 048
  5. ZYLORIC [Concomitant]
     Dosage: 150 MG
     Route: 048
  6. DEDIOL [Concomitant]
     Dosage: 0.6 MCG
     Route: 048
  7. SPORANOX [Concomitant]
     Dosage: 30 ML
     Route: 048
     Dates: start: 20090618
  8. BACTRIM [Concomitant]
     Dosage: 200 MG
     Route: 048
  9. ASPIRIN [Concomitant]
     Dosage: 100 MG
     Route: 048
  10. SIVASTIN [Concomitant]
     Dosage: 20 MG TABLETS
     Route: 048
  11. NORVASC [Concomitant]
     Dosage: 5 MG
     Route: 048
  12. MAGALDRATE [Concomitant]
     Dosage: 10 ML GEL
     Route: 048
  13. CATAPRESAN [Concomitant]
  14. AMPLITAL [Concomitant]
     Dosage: 4 G
     Route: 042
     Dates: start: 20090604, end: 20090615
  15. GENTALYN [Concomitant]
     Dosage: 26 MG
     Route: 042
     Dates: start: 20090604, end: 20090608
  16. LASIX [Concomitant]
     Dosage: 500 MG
     Dates: start: 20090611, end: 20090618
  17. SOLU-MEDROL [Concomitant]
     Dosage: NOT REPORTED
     Route: 042
  18. ARANESP [Concomitant]
  19. DELTACORTENE [Concomitant]
     Dosage: 1MG/KG
     Route: 048
     Dates: start: 20090531, end: 20090605

REACTIONS (4)
  - COAGULOPATHY [None]
  - COLITIS [None]
  - DIARRHOEA [None]
  - SHOCK [None]
